FAERS Safety Report 23169799 (Version 1)
Quarter: 2023Q4

REPORT INFORMATION
  Report Type: Spontaneous
  Country: CA (occurrence: None)
  Receive Date: 20231110
  Receipt Date: 20231110
  Transmission Date: 20240110
  Serious: Yes (Other)
  Sender: FDA-Public Use
  Company Number: CA-ROCHE-3450235

PATIENT
  Age: 63 Year
  Sex: Male

DRUGS (4)
  1. ALECTINIB [Suspect]
     Active Substance: ALECTINIB
     Indication: Product used for unknown indication
     Dosage: 150 MG, 4 CAPS, TWICE A DAY
     Route: 065
     Dates: start: 20170615
  2. CRIZOTINIB [Suspect]
     Active Substance: CRIZOTINIB
     Indication: Product used for unknown indication
     Route: 065
     Dates: start: 20151108, end: 20170406
  3. LORBRENA [Concomitant]
     Active Substance: LORLATINIB
     Indication: Lung adenocarcinoma
     Route: 048
  4. LORBRENA [Concomitant]
     Active Substance: LORLATINIB
     Indication: Anaplastic lymphoma kinase gene mutation

REACTIONS (5)
  - Neoplasm progression [Unknown]
  - Blood creatinine increased [Unknown]
  - Oedema [Unknown]
  - Visual impairment [Unknown]
  - Diarrhoea [Unknown]
